FAERS Safety Report 9735858 (Version 2)
Quarter: 2014Q1

REPORT INFORMATION
  Report Type: Spontaneous
  Country: US (occurrence: None)
  Receive Date: 20131204
  Receipt Date: 20140318
  Transmission Date: 20141002
  Serious: Yes (Life-Threatening)
  Sender: FDA-Public Use
  Company Number: 2036441

PATIENT
  Sex: Female

DRUGS (2)
  1. DEMEROL [Suspect]
     Indication: PRODUCT USED FOR UNKNOWN INDICATION
     Dates: start: 20131118
  2. VERSED [Suspect]
     Indication: PRODUCT USED FOR UNKNOWN INDICATION
     Dates: start: 20131118

REACTIONS (2)
  - Respiratory arrest [None]
  - Myocardial infarction [None]
